FAERS Safety Report 12198948 (Version 2)
Quarter: 2016Q2

REPORT INFORMATION
  Report Type: Spontaneous
  Country: JP (occurrence: JP)
  Receive Date: 20160322
  Receipt Date: 20160420
  Transmission Date: 20160815
  Serious: Yes (Hospitalization)
  Sender: FDA-Public Use
  Company Number: JP-009507513-1512JPN010643

PATIENT
  Age: 87 Year
  Sex: Female

DRUGS (13)
  1. NOVOLIN 30R [Concomitant]
     Active Substance: INSULIN HUMAN
     Dosage: 22 IU, UNK
     Dates: end: 20130430
  2. INSULIN [Concomitant]
     Active Substance: INSULIN NOS
     Dosage: UNK
     Dates: end: 201411
  3. GLACTIV [Suspect]
     Active Substance: SITAGLIPTIN
     Dosage: 25 MG, ONCE A DAY
     Route: 048
     Dates: start: 20150411, end: 20151029
  4. NOVOLIN 30R [Concomitant]
     Active Substance: INSULIN HUMAN
     Dosage: 14 IU, UNK
     Dates: start: 20140826, end: 20140827
  5. GLACTIV [Suspect]
     Active Substance: SITAGLIPTIN
     Dosage: 50 MG, ONCE A DAY
     Route: 048
     Dates: start: 20120207, end: 20120501
  6. NOVOLIN 30R [Concomitant]
     Active Substance: INSULIN HUMAN
     Dosage: 24 IU, UNK
     Dates: start: 20130430, end: 20131111
  7. JANUVIA [Suspect]
     Active Substance: SITAGLIPTIN PHOSPHATE
     Indication: TYPE 2 DIABETES MELLITUS
     Dosage: 50 MG, QD
     Route: 048
     Dates: start: 20140828, end: 20150410
  8. AMARYL [Interacting]
     Active Substance: GLIMEPIRIDE
     Indication: TYPE 2 DIABETES MELLITUS
     Dosage: 1 MG, QD
     Route: 048
     Dates: start: 201411, end: 20150313
  9. NOVOLIN 30R [Concomitant]
     Active Substance: INSULIN HUMAN
     Dosage: 18 IU, UNK
     Dates: start: 20140502, end: 20140826
  10. GLACTIV [Suspect]
     Active Substance: SITAGLIPTIN
     Indication: TYPE 2 DIABETES MELLITUS
     Dosage: 25 MG, ONCE A DAY
     Route: 048
     Dates: start: 20120110, end: 20120206
  11. GLACTIV [Suspect]
     Active Substance: SITAGLIPTIN
     Dosage: 100 MG, ONCE A DAY
     Route: 048
     Dates: start: 20120502, end: 20140827
  12. METGLUCO [Interacting]
     Active Substance: METFORMIN HYDROCHLORIDE
     Indication: TYPE 2 DIABETES MELLITUS
     Dosage: 500 MG, QD
     Route: 048
     Dates: start: 201409, end: 20150501
  13. NOVOLIN 30R [Concomitant]
     Active Substance: INSULIN HUMAN
     Dosage: 20 IU, UNK
     Dates: start: 20131111, end: 20140502

REACTIONS (4)
  - Malaise [Unknown]
  - Hepatic steatosis [Unknown]
  - Drug interaction [Unknown]
  - Oedema [Unknown]

NARRATIVE: CASE EVENT DATE: 20150417
